FAERS Safety Report 6626595-5 (Version None)
Quarter: 2010Q1

REPORT INFORMATION
  Report Type: 
  Country: None (occurrence: None)
  Receive Date: 20100310
  Receipt Date: 20100305
  Transmission Date: 20100710
  Serious: Yes (Other)
  Sender: FDA-Public Use
  Company Number: GB-MERCK-1003GBR00049

PATIENT
  Age: 50 Year
  Sex: Female

DRUGS (7)
  1. MAXALT [Suspect]
     Indication: MIGRAINE
     Route: 048
  2. CITANEST [Suspect]
     Indication: DENTAL CARE
     Route: 065
     Dates: start: 20100224
  3. EPINEPHRINE AND LIDOCAINE HYDROCHLORIDE [Suspect]
     Route: 065
  4. SCANDONEST PLAIN [Suspect]
     Route: 065
  5. SEPTANEST [Suspect]
     Route: 065
  6. PIZOTYLINE [Concomitant]
     Route: 065
  7. SERTRALINE HYDROCHLORIDE [Concomitant]
     Route: 065

REACTIONS (3)
  - DISORIENTATION [None]
  - DRUG INTERACTION [None]
  - TACHYCARDIA [None]
